FAERS Safety Report 4878704-6 (Version None)
Quarter: 2006Q1

REPORT INFORMATION
  Report Type: 
  Country: None (occurrence: None)
  Receive Date: 20060112
  Receipt Date: 20060104
  Transmission Date: 20060701
  Serious: Yes (Other)
  Sender: FDA-Public Use
  Company Number: MX-BRISTOL-MYERS SQUIBB COMPANY-13237003

PATIENT
  Age: 32 Year
  Sex: Female

DRUGS (4)
  1. ABATACEPT [Suspect]
     Indication: RHEUMATOID ARTHRITIS
     Route: 042
     Dates: start: 20040614, end: 20051031
  2. ETHINYLESTRADIOL + GESTODENE [Concomitant]
     Indication: CONTRACEPTION
     Route: 048
     Dates: start: 19970101, end: 20050701
  3. METHOTREXATE [Concomitant]
     Dates: start: 20021010, end: 20051206
  4. SULFASALAZINE [Concomitant]
     Dates: start: 20010513, end: 20051206

REACTIONS (2)
  - ABORTION SPONTANEOUS [None]
  - PREGNANCY [None]
